FAERS Safety Report 7939457-8 (Version None)
Quarter: 2011Q4

REPORT INFORMATION
  Report Type: 
  Country: None (occurrence: None)
  Receive Date: 20111125
  Receipt Date: 20111114
  Transmission Date: 20120403
  Serious: Yes (Hospitalization)
  Sender: FDA-Public Use
  Company Number: FR-ROCHE-1013178

PATIENT
  Sex: Female

DRUGS (5)
  1. VALSARTAN [Suspect]
     Indication: HYPERTENSION
     Route: 048
  2. CLONAZEPAM [Suspect]
     Indication: INSOMNIA
     Route: 048
  3. ESIDRIX [Suspect]
     Indication: HYPERTENSION
     Route: 048
  4. BISOPROLOL FUMARATE [Suspect]
     Indication: HYPERTENSION
     Route: 048
  5. LANTUS [Suspect]
     Indication: DIABETES MELLITUS
     Route: 058

REACTIONS (1)
  - SUICIDE ATTEMPT [None]
